FAERS Safety Report 7953602-X (Version None)
Quarter: 2011Q4

REPORT INFORMATION
  Report Type: 
  Country: None (occurrence: None)
  Receive Date: 20111129
  Receipt Date: 20111116
  Transmission Date: 20120403
  Serious: Yes (Death)
  Sender: FDA-Public Use
  Company Number: CIP11003069

PATIENT
  Age: 88 Year
  Sex: Female

DRUGS (1)
  1. ACTONEL WITH CALCIUM (COPACKAGED) [Suspect]
     Dosage: 35 MG, CYCLIC DAILY, ORAL
     Route: 048
     Dates: start: 20110705

REACTIONS (1)
  - ABDOMINAL PAIN UPPER [None]
